FAERS Safety Report 4490094-X (Version None)
Quarter: 2004Q4

REPORT INFORMATION
  Report Type: 
  Country: None (occurrence: None)
  Receive Date: 20041027
  Receipt Date: 20041018
  Transmission Date: 20050328
  Serious: Yes (Hospitalization, Other)
  Sender: FDA-Public Use
  Company Number: 2004239577US

PATIENT
  Age: 36 Year
  Sex: Female

DRUGS (5)
  1. DEPO-MEDROL [Suspect]
     Indication: BACK PAIN
     Dosage: 40 MG
     Dates: start: 20041013, end: 20041013
  2. LIDOCAINE [Concomitant]
  3. DIAZEPAM [Concomitant]
  4. SOMA [Concomitant]
  5. PANTOPRAZOLE [Concomitant]

REACTIONS (3)
  - BACK PAIN [None]
  - HYPOAESTHESIA [None]
  - MONOPLEGIA [None]
